FAERS Safety Report 6686944-9 (Version None)
Quarter: 2010Q2

REPORT INFORMATION
  Report Type: 
  Country: None (occurrence: None)
  Receive Date: 20100416
  Receipt Date: 20100416
  Transmission Date: 20101027
  Serious: Yes (Other)
  Sender: FDA-Public Use
  Company Number: None

PATIENT
  Sex: Female
  Weight: 77.1115 kg

DRUGS (2)
  1. OXYCODONE HCL [Suspect]
     Indication: NECK PAIN
     Dosage: 15MG 1 EVERY 6 HRS. MOUTH
     Dates: start: 20100301
  2. OXYCODONE HCL [Suspect]
     Indication: NECK PAIN
     Dosage: 15 MG 1 EVERY 6 HRS MOUTH
     Dates: start: 20100401

REACTIONS (7)
  - ABDOMINAL DISCOMFORT [None]
  - CHILLS [None]
  - DRUG INEFFECTIVE [None]
  - MALAISE [None]
  - NAUSEA [None]
  - PRODUCT CONTAMINATION [None]
  - PRODUCT SUBSTITUTION ISSUE [None]
